FAERS Safety Report 16464775 (Version 1)
Quarter: 2019Q2

REPORT INFORMATION
  Report Type: Other
  Country: US (occurrence: US)
  Receive Date: 20190621
  Receipt Date: 20190621
  Transmission Date: 20190711
  Serious: No
  Sender: FDA-Public Use
  Company Number: US-AMAG PHARMACEUTICALS, INC.-AMAG201903140

PATIENT
  Sex: Female

DRUGS (1)
  1. MAKENA [Suspect]
     Active Substance: HYDROXYPROGESTERONE CAPROATE
     Indication: PREMATURE DELIVERY
     Route: 058
     Dates: start: 20190312

REACTIONS (6)
  - Abdominal pain [Unknown]
  - Depression [Unknown]
  - Headache [Unknown]
  - Dizziness postural [Unknown]
  - Anxiety [Unknown]
  - Dizziness [Unknown]
